FAERS Safety Report 14719410 (Version 1)
Quarter: 2018Q2

REPORT INFORMATION
  Report Type: Spontaneous
  Country: JP (occurrence: JP)
  Receive Date: 20180405
  Receipt Date: 20180405
  Transmission Date: 20180711
  Serious: No
  Sender: FDA-Public Use
  Company Number: JP-LUPIN PHARMACEUTICALS INC.-2018-02714

PATIENT
  Age: 52 Year
  Sex: Male
  Weight: 59 kg

DRUGS (14)
  1. BEVACIZUMAB. [Concomitant]
     Active Substance: BEVACIZUMAB
     Indication: COLON CANCER METASTATIC
     Dosage: UNK, CYCLE
     Route: 065
  2. KETAMINE [Concomitant]
     Active Substance: KETAMINE
     Dosage: 100 MG, QD
     Route: 065
  3. FENTANYL. [Concomitant]
     Active Substance: FENTANYL
     Indication: NEURALGIA
     Dosage: UNK, TRANSDERMAL PATCH
     Route: 062
  4. TRAMADOL. [Concomitant]
     Active Substance: TRAMADOL
     Indication: NEURALGIA
     Dosage: 200 MG, QD
     Route: 065
  5. PARACETAMOL [Concomitant]
     Active Substance: ACETAMINOPHEN
     Indication: NEURALGIA
     Dosage: 24000 MG, QD
     Route: 065
  6. DULOXETINE. [Suspect]
     Active Substance: DULOXETINE
     Indication: ANALGESIC THERAPY
     Dosage: 75 MG, QD
     Route: 048
  7. FOLINIC ACID [Concomitant]
     Active Substance: LEUCOVORIN
     Indication: COLON CANCER METASTATIC
     Dosage: UNK,CYCLE
     Route: 065
  8. KETAMINE [Concomitant]
     Active Substance: KETAMINE
     Indication: POSTOPERATIVE ANALGESIA
     Dosage: UNK
     Route: 042
  9. PREGABALIN. [Concomitant]
     Active Substance: PREGABALIN
     Indication: NEURALGIA
     Dosage: 150 MG, QD
     Route: 065
  10. PREGABALIN. [Concomitant]
     Active Substance: PREGABALIN
     Dosage: 300 MG, QD
     Route: 065
  11. CARBAMAZEPINE. [Suspect]
     Active Substance: CARBAMAZEPINE
     Indication: ANALGESIC THERAPY
     Dosage: 400 MG, QD
     Route: 065
  12. FLUOROURACIL. [Concomitant]
     Active Substance: FLUOROURACIL
     Indication: COLON CANCER METASTATIC
     Dosage: UNK, CYCLE
     Route: 065
  13. IRINOTECAN [Concomitant]
     Active Substance: IRINOTECAN
     Indication: COLON CANCER METASTATIC
     Dosage: UNK,CYCLE
     Route: 065
  14. KETAMINE [Concomitant]
     Active Substance: KETAMINE
     Dosage: 50 MG, INTRAVENOUS KETAMINE DILUTED WITH SYRUP
     Route: 048

REACTIONS (2)
  - Somnolence [Unknown]
  - Dizziness [Unknown]
